FAERS Safety Report 7554170-7 (Version None)
Quarter: 2011Q2

REPORT INFORMATION
  Report Type: 
  Country: None (occurrence: None)
  Receive Date: 20110617
  Receipt Date: 20110511
  Transmission Date: 20111010
  Serious: Yes (Other)
  Sender: FDA-Public Use
  Company Number: PHHY2011IT41826

PATIENT
  Sex: Female

DRUGS (1)
  1. AMOXICILLIN [Suspect]
     Indication: BRONCHOPNEUMONIA
     Dosage: 2 G, DAILY
     Route: 048
     Dates: start: 20110430, end: 20110507

REACTIONS (2)
  - ANGIOEDEMA [None]
  - URTICARIA [None]
